FAERS Safety Report 23640610 (Version 1)
Quarter: 2024Q1

REPORT INFORMATION
  Report Type: Report from Study
  Country: US (occurrence: US)
  Receive Date: 20240318
  Receipt Date: 20240318
  Transmission Date: 20240410
  Serious: Yes (Hospitalization)
  Sender: FDA-Public Use
  Company Number: US-002147023-NVSC2023US270410

PATIENT
  Age: 71 Year
  Sex: Female
  Weight: 105.3 kg

DRUGS (5)
  1. ENTRESTO [Suspect]
     Active Substance: SACUBITRIL\VALSARTAN
     Indication: Left ventricular failure
     Dosage: 1 DOSAGE FORM, BID
     Route: 048
  2. ENTRESTO [Suspect]
     Active Substance: SACUBITRIL\VALSARTAN
     Dosage: UNK, 1/2 TABLET IN THE MORNING AND 1/2 TABLET IN THE EVENING BID
     Route: 048
  3. ENTRESTO [Suspect]
     Active Substance: SACUBITRIL\VALSARTAN
     Dosage: 0.5 DOSAGE FORM, BID
     Route: 048
  4. ENTRESTO [Suspect]
     Active Substance: SACUBITRIL\VALSARTAN
     Dosage: 49/51 MG, 1 TABLET (BID)
     Route: 048
  5. CARVEDILOL [Concomitant]
     Active Substance: CARVEDILOL
     Indication: Product used for unknown indication
     Dosage: UNK
     Route: 065

REACTIONS (7)
  - Blood potassium increased [Unknown]
  - Arthralgia [Recovering/Resolving]
  - Pain [Unknown]
  - Throat irritation [Recovered/Resolved]
  - Dysphonia [Recovered/Resolved]
  - Wrong technique in product usage process [Unknown]
  - Hypertension [Unknown]

NARRATIVE: CASE EVENT DATE: 20240111
